FAERS Safety Report 6491552-9 (Version None)
Quarter: 2009Q4

REPORT INFORMATION
  Report Type: 
  Country: None (occurrence: None)
  Receive Date: 20091211
  Receipt Date: 20091201
  Transmission Date: 20100525
  Serious: Yes (Other)
  Sender: FDA-Public Use
  Company Number: US-JNJCH-2009031526

PATIENT

DRUGS (1)
  1. DIPHENHYDRAMINE TOPICAL (UNSPECIFIED) [Suspect]
     Indication: RASH VESICULAR
     Dosage: TEXT:UNSPECIFIED
     Route: 061

REACTIONS (3)
  - AGITATION [None]
  - DRUG TOXICITY [None]
  - HALLUCINATIONS, MIXED [None]
